FAERS Safety Report 5872369-2 (Version None)
Quarter: 2008Q3

REPORT INFORMATION
  Report Type: 
  Country: None (occurrence: None)
  Receive Date: 20080905
  Receipt Date: 20080825
  Transmission Date: 20090109
  Serious: Yes (Death, Other)
  Sender: FDA-Public Use
  Company Number: US-JNJFOC-20080200889

PATIENT
  Sex: Female
  Weight: 74.39 kg

DRUGS (12)
  1. REMICADE [Suspect]
     Route: 042
  2. REMICADE [Suspect]
     Route: 042
  3. REMICADE [Suspect]
     Route: 042
  4. REMICADE [Suspect]
     Route: 042
  5. REMICADE [Suspect]
     Route: 042
  6. REMICADE [Suspect]
     Route: 042
  7. REMICADE [Suspect]
     Indication: RHEUMATOID ARTHRITIS
     Route: 042
  8. ARAVA [Concomitant]
     Indication: RHEUMATOID ARTHRITIS
  9. TRAMADOL HCL [Concomitant]
     Indication: PAIN
  10. CLARITIN [Concomitant]
     Indication: PREMEDICATION
     Route: 048
  11. TYLENOL (CAPLET) [Concomitant]
     Indication: PREMEDICATION
  12. LEFLUNOMIDE [Concomitant]

REACTIONS (8)
  - ARTHRALGIA [None]
  - DEATH [None]
  - FALL [None]
  - FATIGUE [None]
  - HYPOAESTHESIA [None]
  - INSOMNIA [None]
  - MUSCULAR WEAKNESS [None]
  - PAIN IN EXTREMITY [None]
